FAERS Safety Report 8193835-3 (Version None)
Quarter: 2012Q1

REPORT INFORMATION
  Report Type: 
  Country: None (occurrence: None)
  Receive Date: 20120308
  Receipt Date: 20120224
  Transmission Date: 20120608
  Serious: Yes (Other)
  Sender: FDA-Public Use
  Company Number: US-JNJFOC-20120214681

PATIENT

DRUGS (2)
  1. ANTI-THYMOCYTE GLOBULIN NOS [Suspect]
     Indication: TRANSPLANT
     Dosage: OVER 4-6 HOURS
     Route: 042
  2. ORTHOCLONE OKT3 [Suspect]
     Indication: TRANSPLANT
     Route: 065

REACTIONS (8)
  - HYPERGLYCAEMIA [None]
  - PYREXIA [None]
  - CELLULITIS [None]
  - HYPERTENSION [None]
  - BONE MARROW FAILURE [None]
  - HEADACHE [None]
  - MYALGIA [None]
  - RASH [None]
